FAERS Safety Report 8560407-8 (Version None)
Quarter: 2012Q3

REPORT INFORMATION
  Report Type: 
  Country: None (occurrence: None)
  Receive Date: 20120802
  Receipt Date: 20120725
  Transmission Date: 20120928
  Serious: Yes (Hospitalization, Other)
  Sender: FDA-Public Use
  Company Number: CA-JNJFOC-20120713194

PATIENT
  Age: 44 Year
  Sex: Male

DRUGS (3)
  1. NICORETTE [Suspect]
     Indication: PRODUCT USED FOR UNKNOWN INDICATION
     Dosage: 4 MG GUM, 20-22 GUMS A DAY
     Route: 048
  2. WELLBUTRIN XL [Concomitant]
     Route: 065
  3. NICORETTE [Suspect]
     Indication: PRODUCT USED FOR UNKNOWN INDICATION
     Dosage: 4 MG LOZENGE, 20-22 DAILY
     Route: 048

REACTIONS (8)
  - NICOTINE DEPENDENCE [None]
  - CONVULSION [None]
  - INCORRECT DRUG ADMINISTRATION DURATION [None]
  - HEART RATE ABNORMAL [None]
  - CONFUSIONAL STATE [None]
  - OVERDOSE [None]
  - SPEECH DISORDER [None]
  - VISION BLURRED [None]
